FAERS Safety Report 15941491 (Version 1)
Quarter: 2019Q1

REPORT INFORMATION
  Report Type: Spontaneous
  Country: US (occurrence: US)
  Receive Date: 20190208
  Receipt Date: 20190208
  Transmission Date: 20190417
  Serious: No
  Sender: FDA-Public Use
  Company Number: US-THE RITEDOSE CORPORATION-2018RIT000065

PATIENT

DRUGS (1)
  1. ALBUTEROL SULFATE INHALATION SOLUTION [Suspect]
     Active Substance: ALBUTEROL SULFATE
     Indication: CHRONIC OBSTRUCTIVE PULMONARY DISEASE
     Dosage: 1 VIAL QID
     Route: 055
     Dates: start: 2013

REACTIONS (3)
  - Product use in unapproved indication [Unknown]
  - Nasopharyngitis [Unknown]
  - Product administration error [Unknown]

NARRATIVE: CASE EVENT DATE: 201801
